FAERS Safety Report 12010833 (Version 2)
Quarter: 2016Q1

REPORT INFORMATION
  Report Type: Spontaneous
  Country: US (occurrence: US)
  Receive Date: 20160205
  Receipt Date: 20160311
  Transmission Date: 20160526
  Serious: Yes (Death)
  Sender: FDA-Public Use
  Company Number: PHEH2016US002844

PATIENT
  Sex: Female
  Weight: 61.6 kg

DRUGS (1)
  1. VOTRIENT [Suspect]
     Active Substance: PAZOPANIB HYDROCHLORIDE
     Indication: LEIOMYOSARCOMA
     Dosage: 800 MG, QD
     Route: 048
     Dates: start: 20150608, end: 20151201

REACTIONS (1)
  - Malignant neoplasm progression [Fatal]
